FAERS Safety Report 23778286 (Version 4)
Quarter: 2024Q2

REPORT INFORMATION
  Report Type: Spontaneous
  Country: FR (occurrence: FR)
  Receive Date: 20240424
  Receipt Date: 20240612
  Transmission Date: 20240716
  Serious: Yes (Death, Hospitalization, Other)
  Sender: FDA-Public Use
  Company Number: FR-CHEPLA-2024004304

PATIENT
  Age: 34 Year
  Sex: Male

DRUGS (32)
  1. ACETAMINOPHEN [Suspect]
     Active Substance: ACETAMINOPHEN
     Indication: Product used for unknown indication
     Dosage: UNK
     Route: 065
  2. MIANSERIN [Interacting]
     Active Substance: MIANSERIN
     Indication: Depression
     Dosage: THERAPY START DATE AND STOP DATE: 2016
     Route: 065
  3. MIANSERIN [Interacting]
     Active Substance: MIANSERIN
     Indication: Back pain
  4. MIANSERIN [Interacting]
     Active Substance: MIANSERIN
     Indication: Bipolar disorder
  5. MIANSERIN [Interacting]
     Active Substance: MIANSERIN
     Indication: Depression
  6. TRAMADOL [Interacting]
     Active Substance: TRAMADOL\TRAMADOL HYDROCHLORIDE
     Indication: Product used for unknown indication
     Dosage: UNK
     Route: 065
  7. FENTANYL [Interacting]
     Active Substance: FENTANYL\FENTANYL CITRATE
     Indication: Product used for unknown indication
     Dosage: UNK
     Route: 062
  8. AMISULPRIDE [Suspect]
     Active Substance: AMISULPRIDE
     Indication: Schizophrenia
     Dosage: UNK
     Route: 065
  9. AMISULPRIDE [Suspect]
     Active Substance: AMISULPRIDE
     Indication: Bipolar disorder
  10. SKENAN [Interacting]
     Active Substance: MORPHINE SULFATE
     Indication: Product used for unknown indication
     Dosage: UNK
     Route: 065
     Dates: start: 201608, end: 20160908
  11. CLOTIAZEPAM [Suspect]
     Active Substance: CLOTIAZEPAM
     Indication: Product used for unknown indication
     Dosage: 3 DOSAGE FORM, QD (FOR A MONTH)
     Route: 065
  12. QUETIAPINE FUMARATE [Interacting]
     Active Substance: QUETIAPINE FUMARATE
     Indication: Product used for unknown indication
     Dosage: 1 DOSAGE FORM, QD (1 TABLET AT NIGHT FOR ONE MONTH)
     Route: 065
  13. VALIUM [Interacting]
     Active Substance: DIAZEPAM
     Indication: Bipolar disorder
     Dosage: UNK
     Route: 065
  14. CODEINE [Interacting]
     Active Substance: CODEINE
     Indication: Product used for unknown indication
     Dosage: UNK
     Route: 065
  15. COCAINE [Interacting]
     Active Substance: COCAINE
     Indication: Product used for unknown indication
     Dosage: UNK
     Route: 065
  16. CLOBAZAM [Suspect]
     Active Substance: CLOBAZAM
     Indication: Product used for unknown indication
     Dosage: UNK
     Route: 065
     Dates: start: 201608, end: 20160908
  17. PAROXETINE HYDROCHLORIDE [Suspect]
     Active Substance: PAROXETINE HYDROCHLORIDE\PAROXETINE HYDROCHLORIDE ANHYDROUS
     Indication: Back pain
     Dosage: UNK
     Route: 065
     Dates: start: 201608, end: 20160908
  18. ACETAMINOPHEN\CODEINE PHOSPHATE [Suspect]
     Active Substance: ACETAMINOPHEN\CODEINE PHOSPHATE
     Indication: Product used for unknown indication
     Dosage: UNK
     Route: 065
  19. IBUPROFEN [Suspect]
     Active Substance: IBUPROFEN
     Indication: Back pain
     Dosage: THERAPY START DATE AND STOP DATE: 2016
     Route: 048
  20. CODEINE PHOSPHATE\IBUPROFEN [Suspect]
     Active Substance: CODEINE PHOSPHATE\IBUPROFEN
     Indication: Back pain
     Dosage: 1 DOSAGE FORM, TID (THERAPY START DATE AND STOP DATE: 2016)
     Route: 048
  21. PAROXETINE MESYLATE [Suspect]
     Active Substance: PAROXETINE MESYLATE
     Indication: Back pain
     Dosage: UNK
     Route: 065
     Dates: start: 201608, end: 20160908
  22. ARTANE [Suspect]
     Active Substance: TRIHEXYPHENIDYL HYDROCHLORIDE
     Indication: Product used for unknown indication
     Dosage: 5 MILLIGRAM
     Route: 065
     Dates: start: 201609, end: 20160908
  23. NAFRONYL [Suspect]
     Active Substance: NAFRONYL
     Indication: Product used for unknown indication
     Dosage: UNK
     Route: 065
  24. KETAMINE [Suspect]
     Active Substance: KETAMINE
     Indication: Back pain
     Dosage: THERAPY START DATE AND STOP DATE: 2016
     Route: 065
  25. THIOCOLCHICOSIDE [Suspect]
     Active Substance: THIOCOLCHICOSIDE
     Indication: Product used for unknown indication
     Dosage: 4 MILLIGRAM
     Route: 065
  26. OXYCONTIN [Interacting]
     Active Substance: OXYCODONE HYDROCHLORIDE
     Indication: Product used for unknown indication
     Dosage: UNK
     Route: 065
  27. TEMAZEPAM [Suspect]
     Active Substance: TEMAZEPAM
     Indication: Product used for unknown indication
     Dosage: UNK
     Route: 065
  28. MEPHENESIN [Suspect]
     Active Substance: MEPHENESIN
     Indication: Product used for unknown indication
     Dosage: UNK
     Route: 065
  29. OXAZEPAM [Suspect]
     Active Substance: OXAZEPAM
     Indication: Bipolar disorder
     Dosage: UNK
     Route: 048
  30. OXAZEPAM [Suspect]
     Active Substance: OXAZEPAM
     Indication: Depression
  31. PRAZEPAM [Interacting]
     Active Substance: PRAZEPAM
     Indication: Product used for unknown indication
     Dosage: UNK
     Route: 065
  32. ETIFOXINE [Suspect]
     Active Substance: ETIFOXINE
     Indication: Back pain
     Dosage: UNK
     Route: 065
     Dates: start: 201608, end: 20160908

REACTIONS (28)
  - Myocarditis [Fatal]
  - Cardio-respiratory arrest [Fatal]
  - Cardiomyopathy [Fatal]
  - Hyperglycaemia [Fatal]
  - Coma [Fatal]
  - Gallbladder injury [Fatal]
  - Stenosis [Fatal]
  - Aspiration [Fatal]
  - Encephalopathy [Fatal]
  - Hepatitis acute [Fatal]
  - Respiratory depression [Fatal]
  - Acute pulmonary oedema [Fatal]
  - Myocardial infarction [Fatal]
  - Hepatic cytolysis [Fatal]
  - Accidental poisoning [Fatal]
  - Toxicity to various agents [Fatal]
  - Overdose [Fatal]
  - Drug interaction [Fatal]
  - Labelled drug-drug interaction issue [Fatal]
  - Synovitis [Unknown]
  - Arrhythmia [Unknown]
  - Hypotension [Unknown]
  - Inflammation [Unknown]
  - Hypersomnia [Unknown]
  - Leukocytosis [Unknown]
  - Monocytosis [Unknown]
  - Confusional state [Unknown]
  - Somnolence [Unknown]

NARRATIVE: CASE EVENT DATE: 20160901
